FAERS Safety Report 12756384 (Version 2)
Quarter: 2016Q4

REPORT INFORMATION
  Report Type: Report from Study
  Country: ZA (occurrence: ZA)
  Receive Date: 20160916
  Receipt Date: 20161024
  Transmission Date: 20170207
  Serious: Yes (Death, Hospitalization, Other)
  Sender: FDA-Public Use
  Company Number: ZA-GILEAD-2016-0232638

PATIENT
  Age: 32 Year
  Sex: Male

DRUGS (2)
  1. EFAVIRENZ/EMTRICITABINE/TENOFOVIR DISOPROXIL FUMARATE [Suspect]
     Active Substance: EFAVIRENZ\EMTRICITABINE\TENOFOVIR DISOPROXIL FUMARATE
     Indication: PRODUCT USED FOR UNKNOWN INDICATION
     Route: 065
  2. TRIMOXAZOLE-BC [Concomitant]
     Dosage: UNK
     Dates: start: 20141023

REACTIONS (3)
  - Immunosuppression [Unknown]
  - Pancytopenia [Fatal]
  - Vomiting [Unknown]

NARRATIVE: CASE EVENT DATE: 20141103
